FAERS Safety Report 7945053-9 (Version None)
Quarter: 2011Q4

REPORT INFORMATION
  Report Type: 
  Country: None (occurrence: None)
  Receive Date: 20111129
  Receipt Date: 20111121
  Transmission Date: 20120403
  Serious: Yes (Death, Life-Threatening)
  Sender: FDA-Public Use
  Company Number: JP-ROXANE LABORATORIES, INC.-2011-RO-01663RO

PATIENT
  Age: 35 Year
  Sex: Female

DRUGS (5)
  1. DOXORUBICIN HCL [Suspect]
     Indication: CHEMOTHERAPY
  2. MORPHINE [Suspect]
     Indication: BONE PAIN
  3. CYCLOPHOSPHAMIDE [Suspect]
     Indication: CHEMOTHERAPY
  4. VINCRISTINE [Suspect]
     Indication: CHEMOTHERAPY
  5. METHOTREXATE [Suspect]
     Indication: CHEMOTHERAPY

REACTIONS (6)
  - DISSEMINATED INTRAVASCULAR COAGULATION [None]
  - RESPIRATORY FAILURE [None]
  - VENTRICULAR FIBRILLATION [None]
  - CARDIAC ARREST [None]
  - DRUG INEFFECTIVE [None]
  - TUMOUR LYSIS SYNDROME [None]
